FAERS Safety Report 6966429-2 (Version None)
Quarter: 2010Q3

REPORT INFORMATION
  Report Type: 
  Country: None (occurrence: None)
  Receive Date: 20100906
  Receipt Date: 20100902
  Transmission Date: 20110219
  Serious: Yes (Death, Hospitalization)
  Sender: FDA-Public Use
  Company Number: TW-BRISTOL-MYERS SQUIBB COMPANY-15255391

PATIENT
  Age: 69 Year
  Sex: Female

DRUGS (5)
  1. ERBITUX [Suspect]
     Indication: COLON CANCER
     Dosage: TOTAL  7 COURSES ON MAY 28 CONTIN INF FOR 2H ON DAY 1
     Route: 042
     Dates: start: 20090528, end: 20090826
  2. OXALIPLATIN [Suspect]
     Indication: COLON CANCER
     Dosage: 85MG/M2 ON DAY 1(1 IN 2WK), 7 COURSES
     Dates: start: 20090528, end: 20090826
  3. LEUCOVORIN CALCIUM [Suspect]
     Indication: COLON CANCER
     Dosage: 7 COURSES
     Dates: start: 20090528, end: 20090826
  4. FLUOROURACIL [Suspect]
     Indication: COLON CANCER
     Dosage: 7 COURSES, 400MG/M2 BOLUS INF ON DAY 1 600MG/M2 CONT INF FOR 22H ON DAY 1,2
     Route: 042
     Dates: start: 20090528, end: 20090826
  5. LEUCOVORIN CALCIUM [Concomitant]
     Indication: COLON CANCER

REACTIONS (2)
  - INTERSTITIAL LUNG DISEASE [None]
  - RESPIRATORY FAILURE [None]
